FAERS Safety Report 19589129 (Version 1)
Quarter: 2021Q3

REPORT INFORMATION
  Report Type: Spontaneous
  Country: CN (occurrence: CN)
  Receive Date: 20210721
  Receipt Date: 20210721
  Transmission Date: 20211014
  Serious: Yes (Other)
  Sender: FDA-Public Use
  Company Number: CN-PFIZER INC-2021847150

PATIENT
  Age: 77 Year
  Sex: Female
  Weight: 59 kg

DRUGS (3)
  1. TAZOCIN [Suspect]
     Active Substance: PIPERACILLIN SODIUM\TAZOBACTAM SODIUM
     Indication: ANTI-INFECTIVE THERAPY
  2. TAZOCIN [Suspect]
     Active Substance: PIPERACILLIN SODIUM\TAZOBACTAM SODIUM
     Indication: PERITONEAL DIALYSIS
     Dosage: 4.5 G, TWICE A DAY (EVERY 12 HOURS, Q12H)
     Route: 041
     Dates: start: 20210612, end: 20210630
  3. SODIUM CHLORIDE. [Concomitant]
     Active Substance: SODIUM CHLORIDE
     Indication: PERITONEAL DIALYSIS
     Dosage: 100 ML, 2X/DAY
     Route: 041
     Dates: start: 20210612, end: 20210630

REACTIONS (4)
  - Delirium [Recovering/Resolving]
  - Disorganised speech [Recovering/Resolving]
  - Toxic encephalopathy [Recovering/Resolving]
  - Mania [Recovering/Resolving]

NARRATIVE: CASE EVENT DATE: 20210630
